FAERS Safety Report 13292506 (Version 2)
Quarter: 2017Q2

REPORT INFORMATION
  Report Type: Report from Study
  Country: US (occurrence: US)
  Receive Date: 20170303
  Receipt Date: 20170407
  Transmission Date: 20170830
  Serious: Yes (Other)
  Sender: FDA-Public Use
  Company Number: US-MALLINCKRODT-T201700741

PATIENT
  Age: 64 Year
  Sex: Male

DRUGS (1)
  1. UVADEX [Suspect]
     Active Substance: METHOXSALEN
     Indication: MYCOSIS FUNGOIDES
     Dosage: 2 SESSIONS FOR 3 HOURS EVERY 4 WEEKS
     Route: 037
     Dates: start: 201006, end: 20170310

REACTIONS (7)
  - Disease progression [Not Recovered/Not Resolved]
  - Vascular access complication [Not Recovered/Not Resolved]
  - Cataract [Unknown]
  - Temperature intolerance [Not Recovered/Not Resolved]
  - Chemical burn of skin [Unknown]
  - Drug ineffective [Unknown]
  - Pruritus [Not Recovered/Not Resolved]

NARRATIVE: CASE EVENT DATE: 20140221
